FAERS Safety Report 5811674-2 (Version None)
Quarter: 2008Q3

REPORT INFORMATION
  Report Type: 
  Country: None (occurrence: None)
  Receive Date: 20080716
  Receipt Date: 20080715
  Transmission Date: 20090109
  Serious: Yes (Other)
  Sender: FDA-Public Use
  Company Number: A0737609A

PATIENT
  Age: 55 Year
  Sex: Female
  Weight: 113 kg

DRUGS (3)
  1. ALLI [Suspect]
     Dates: start: 20080601
  2. FIBER [Concomitant]
  3. ASPIRIN [Concomitant]

REACTIONS (3)
  - FAECES DISCOLOURED [None]
  - RECTAL DISCHARGE [None]
  - RECTAL HAEMORRHAGE [None]
